FAERS Safety Report 6579836-7 (Version None)
Quarter: 2010Q1

REPORT INFORMATION
  Report Type: 
  Country: None (occurrence: None)
  Receive Date: 20100209
  Receipt Date: 20100209
  Transmission Date: 20100710
  Serious: Yes (Other)
  Sender: FDA-Public Use
  Company Number: None

PATIENT
  Age: 58 Year
  Sex: Male
  Weight: 97.5234 kg

DRUGS (1)
  1. QVAR 80 [Suspect]
     Indication: ASTHMA
     Dosage: 1 PUFF 2 X PER DAY

REACTIONS (2)
  - DYSPHAGIA [None]
  - DYSPHONIA [None]
